FAERS Safety Report 4342493-4 (Version None)
Quarter: 2004Q2

REPORT INFORMATION
  Report Type: 
  Country: None (occurrence: None)
  Receive Date: 20040419
  Receipt Date: 20040419
  Transmission Date: 20050107
  Serious: Yes (Hospitalization)
  Sender: FDA-Public Use
  Company Number: None

PATIENT
  Age: 58 Year
  Sex: Male
  Weight: 77.1115 kg

DRUGS (8)
  1. ZETIA [Suspect]
  2. AMIODARONE HCL [Concomitant]
  3. IMDUR [Concomitant]
  4. LASIX [Concomitant]
  5. PLAVIX [Concomitant]
  6. COZAAR [Concomitant]
  7. SINGULAIR [Concomitant]
  8. XANAX [Concomitant]

REACTIONS (2)
  - DYSURIA [None]
  - RHABDOMYOLYSIS [None]
